FAERS Safety Report 6987837-X (Version None)
Quarter: 2010Q3

REPORT INFORMATION
  Report Type: 
  Country: None (occurrence: None)
  Receive Date: 20100914
  Receipt Date: 20100809
  Transmission Date: 20110219
  Serious: Yes (Other)
  Sender: FDA-Public Use
  Company Number: 2010EU004297

PATIENT
  Age: 56 Year
  Sex: Female
  Weight: 98 kg

DRUGS (2)
  1. VESICARE [Suspect]
     Indication: HYPERTONIC BLADDER
     Dosage: 5 MG, UID/QD, ORAL
     Route: 048
     Dates: start: 20100730, end: 20100802
  2. FLAVONID (DIOSMIN, HESPERIDIN) [Concomitant]

REACTIONS (12)
  - ABDOMINAL PAIN [None]
  - CONDITION AGGRAVATED [None]
  - DRY MOUTH [None]
  - DYSGEUSIA [None]
  - HEADACHE [None]
  - MYALGIA [None]
  - OESOPHAGEAL PAIN [None]
  - PAIN [None]
  - SALIVA ALTERED [None]
  - SOMNOLENCE [None]
  - URINARY TRACT INFECTION [None]
  - VISION BLURRED [None]
